FAERS Safety Report 6050440-2 (Version None)
Quarter: 2009Q1

REPORT INFORMATION
  Report Type: 
  Country: None (occurrence: None)
  Receive Date: 20090122
  Receipt Date: 20090122
  Transmission Date: 20090719
  Serious: Yes (Other)
  Sender: FDA-Public Use
  Company Number: None

PATIENT
  Age: 62 Year
  Sex: Male
  Weight: 88.4514 kg

DRUGS (1)
  1. PROVIGIL [Suspect]
     Dosage: 1/2 TO 1 TABLET 200MG TABLET TWICE DAILY PO APPROX 10 DAYS
     Route: 048

REACTIONS (3)
  - BLISTER [None]
  - MUSCLE SPASMS [None]
  - SKIN EXFOLIATION [None]
